FAERS Safety Report 11121750 (Version 1)
Quarter: 2015Q2

REPORT INFORMATION
  Report Type: Spontaneous
  Country: GB (occurrence: GB)
  Receive Date: 20150519
  Receipt Date: 20150519
  Transmission Date: 20150821
  Serious: Yes (Disabling, Other)
  Sender: FDA-Public Use
  Company Number: GB-TEVA-562784ACC

PATIENT
  Age: 18 Year
  Sex: Female
  Weight: 50.8 kg

DRUGS (2)
  1. CERAZETTE [Concomitant]
     Active Substance: DESOGESTREL
  2. AMITRIPTYLINE [Suspect]
     Active Substance: AMITRIPTYLINE
     Indication: NEURALGIA
     Dosage: STARTING AT 10MG PUSHED UP TO 50MG GRADUALLY
     Route: 048
     Dates: start: 20130801, end: 20140201

REACTIONS (4)
  - Hypersomnia [Unknown]
  - Anxiety [Recovered/Resolved]
  - Fatigue [Recovered/Resolved]
  - Drug ineffective [Unknown]

NARRATIVE: CASE EVENT DATE: 20131101
